FAERS Safety Report 8880967 (Version 1)
Quarter: 2012Q4

REPORT INFORMATION
  Report Type: 
  Country: US (occurrence: US)
  Receive Date: 20121101
  Receipt Date: 20121101
  Transmission Date: 20130627
  Serious: Yes (Other)
  Sender: FDA-Public Use
  Company Number: US-PFIZER INC-HQWYE238115JUN06

PATIENT
  Age: 68 Year
  Sex: Female
  Weight: 68 kg

DRUGS (6)
  1. PREMARIN [Suspect]
     Indication: HORMONE REPLACEMENT THERAPY
     Dosage: 0.625 mg, UNK
     Route: 048
     Dates: start: 1984, end: 2003
  2. PROVERA [Suspect]
     Indication: HORMONE REPLACEMENT THERAPY
     Dosage: 2.5 mg, UNK
     Route: 048
     Dates: start: 1984, end: 199801
  3. PROVERA [Suspect]
     Dosage: 2.5 mg, UNK
     Route: 048
     Dates: start: 199909, end: 2003
  4. MEDROXYPROGESTERONE ACETATE [Suspect]
     Indication: HORMONE REPLACEMENT THERAPY
     Dosage: 2.5 mg, UNK
     Route: 048
     Dates: start: 1984, end: 199801
  5. MEDROXYPROGESTERONE ACETATE [Suspect]
     Dosage: 2.5 mg, UNK
     Dates: start: 199909, end: 2003
  6. CYCRIN [Suspect]
     Indication: HORMONE REPLACEMENT THERAPY
     Dosage: 2.5 mg, UNK
     Route: 048
     Dates: start: 199801, end: 199909

REACTIONS (1)
  - Breast cancer [Unknown]
